FAERS Safety Report 5965020-4 (Version None)
Quarter: 2008Q4

REPORT INFORMATION
  Report Type: 
  Country: None (occurrence: None)
  Receive Date: 20081125
  Receipt Date: 20081118
  Transmission Date: 20090506
  Serious: Yes (Other)
  Sender: FDA-Public Use
  Company Number: US-ASTRAZENECA-2008UW25799

PATIENT
  Age: 67 Year
  Sex: Female
  Weight: 65.8 kg

DRUGS (4)
  1. CRESTOR [Suspect]
     Indication: BLOOD CHOLESTEROL INCREASED
     Dosage: 10 MG
     Route: 048
     Dates: start: 20081001
  2. COUMADIN [Concomitant]
  3. SERTRALINE [Concomitant]
  4. TEMAZEPAM [Concomitant]

REACTIONS (4)
  - BALANCE DISORDER [None]
  - DIZZINESS POSTURAL [None]
  - DYSPNOEA [None]
  - HYPOTENSION [None]
